FAERS Safety Report 6733659-4 (Version None)
Quarter: 2010Q2

REPORT INFORMATION
  Report Type: 
  Country: None (occurrence: None)
  Receive Date: 20100520
  Receipt Date: 20100512
  Transmission Date: 20101027
  Serious: Yes (Other)
  Sender: FDA-Public Use
  Company Number: NL-PFIZER INC-2010059543

PATIENT
  Age: 78 Year
  Sex: Female

DRUGS (2)
  1. NORVASC [Suspect]
     Dosage: 5 MG, UNK
     Dates: start: 20000101
  2. NORVASC [Suspect]
     Dosage: 10 MG, UNK
     Dates: start: 20100501

REACTIONS (6)
  - ABDOMINAL PAIN [None]
  - BLOOD PRESSURE INADEQUATELY CONTROLLED [None]
  - EPISTAXIS [None]
  - MALAISE [None]
  - MUSCLE SPASMS [None]
  - PERIPHERAL COLDNESS [None]
